FAERS Safety Report 4631150-2 (Version None)
Quarter: 2005Q2

REPORT INFORMATION
  Report Type: 
  Country: None (occurrence: None)
  Receive Date: 20050407
  Receipt Date: 20050407
  Transmission Date: 20051028
  Serious: Yes (Life-Threatening, Hospitalization)
  Sender: FDA-Public Use
  Company Number: None

PATIENT
  Age: 40 Year
  Sex: Female
  Weight: 97 kg

DRUGS (1)
  1. HYDROMORPHONE [Suspect]
     Dosage: 3.2          INTRAVENOU
     Route: 042

REACTIONS (4)
  - DYSPNOEA [None]
  - HYPOXIA [None]
  - RESPIRATORY RATE DECREASED [None]
  - SOMNOLENCE [None]
